FAERS Safety Report 7251559-0 (Version None)
Quarter: 2011Q1

REPORT INFORMATION
  Report Type: 
  Country: None (occurrence: None)
  Receive Date: 20110128
  Receipt Date: 20110119
  Transmission Date: 20110831
  Serious: Yes (Hospitalization)
  Sender: FDA-Public Use
  Company Number: DE-NAPPMUNDI-DEU-2011-0006843

PATIENT

DRUGS (9)
  1. MORPHINE SULFATE [Suspect]
     Indication: DRUG DEPENDENCE
     Dosage: 400 MG, DAILY
     Route: 048
     Dates: start: 20101129
  2. YASMIN [Concomitant]
  3. ZYPREXA [Concomitant]
  4. RIVOTRIL [Concomitant]
  5. REYATAZ [Concomitant]
  6. VIREAD [Concomitant]
  7. CHLORALDURAT BLAU [Concomitant]
  8. CITALOPRAM [Concomitant]
  9. VIDEX [Concomitant]

REACTIONS (2)
  - CROHN'S DISEASE [None]
  - ENTEROCOLITIS INFECTIOUS [None]
